FAERS Safety Report 7323266-7 (Version None)
Quarter: 2011Q1

REPORT INFORMATION
  Report Type: 
  Country: None (occurrence: None)
  Receive Date: 20110301
  Receipt Date: 20110223
  Transmission Date: 20110831
  Serious: Yes (Other)
  Sender: FDA-Public Use
  Company Number: PT-PFIZER INC-2011040077

PATIENT
  Age: 81 Year
  Sex: Male
  Weight: 50 kg

DRUGS (1)
  1. ZYVOX [Suspect]
     Indication: OSTEOMYELITIS
     Route: 048
     Dates: start: 20110107, end: 20110131

REACTIONS (8)
  - CHEILITIS [None]
  - DIARRHOEA [None]
  - DECREASED APPETITE [None]
  - NO THERAPEUTIC RESPONSE [None]
  - POSTOPERATIVE ABSCESS [None]
  - VOMITING [None]
  - WOUND [None]
  - SEPSIS [None]
